FAERS Safety Report 6586943-1 (Version None)
Quarter: 2010Q1

REPORT INFORMATION
  Report Type: 
  Country: None (occurrence: None)
  Receive Date: 20100217
  Receipt Date: 20090511
  Transmission Date: 20100710
  Serious: Yes (Hospitalization, Other)
  Sender: FDA-Public Use
  Company Number: US-ALLERGAN-0904516US

PATIENT
  Age: 79 Year
  Sex: Female
  Weight: 49 kg

DRUGS (4)
  1. BOTOX [Suspect]
     Indication: OROMANDIBULAR DYSTONIA
     Dosage: 100 UNITS, SINGLE
     Route: 030
     Dates: start: 20090325, end: 20090325
  2. BOTOX [Suspect]
     Route: 030
     Dates: start: 20081231, end: 20081231
  3. BOTOX [Suspect]
     Route: 030
     Dates: start: 20081126, end: 20081126
  4. MIRAPEX [Concomitant]
     Dosage: 0.5 MG, QHS

REACTIONS (1)
  - DYSPHAGIA [None]
